FAERS Safety Report 11526327 (Version 1)
Quarter: 2015Q3

REPORT INFORMATION
  Report Type: Spontaneous
  Country: US (occurrence: US)
  Receive Date: 20150903
  Receipt Date: 20150903
  Transmission Date: 20151125
  Serious: No
  Sender: FDA-Public Use
  Company Number: US-ELI_LILLY_AND_COMPANY-US201308003205

PATIENT
  Age: 76 Year
  Sex: Female
  Weight: 40.82 kg

DRUGS (2)
  1. CYMBALTA [Suspect]
     Active Substance: DULOXETINE HYDROCHLORIDE
     Indication: DEPRESSION
     Dosage: 30 MG, QD
     Dates: start: 20130806
  2. CYMBALTA [Suspect]
     Active Substance: DULOXETINE HYDROCHLORIDE
     Indication: PAIN

REACTIONS (3)
  - Restless legs syndrome [Unknown]
  - Somnambulism [Unknown]
  - Initial insomnia [Unknown]

NARRATIVE: CASE EVENT DATE: 20130806
